FAERS Safety Report 10573896 (Version 2)
Quarter: 2014Q4

REPORT INFORMATION
  Report Type: Report from Study
  Country: DE (occurrence: DE)
  Receive Date: 20141110
  Receipt Date: 20141208
  Transmission Date: 20150529
  Serious: Yes (Hospitalization)
  Sender: FDA-Public Use
  Company Number: PHHY2014DE142213

PATIENT
  Sex: Female
  Weight: 69 kg

DRUGS (3)
  1. STI571 [Suspect]
     Active Substance: IMATINIB MESYLATE
     Dosage: 400 MG, QD
     Route: 048
     Dates: start: 20081201, end: 20081204
  2. STI571 [Suspect]
     Active Substance: IMATINIB MESYLATE
     Indication: CHRONIC MYELOID LEUKAEMIA
     Dosage: GREATER THAN 400 MG QD
     Route: 048
     Dates: start: 20081107, end: 20081124
  3. LISINOPRIL COMP [Concomitant]
     Indication: HYPERTENSIVE HEART DISEASE
     Dosage: 10/12.5 MG IN THE MORNING
     Route: 048

REACTIONS (1)
  - Dermatitis allergic [Recovered/Resolved]

NARRATIVE: CASE EVENT DATE: 20081124
